FAERS Safety Report 9084019 (Version 2)
Quarter: 2013Q1

REPORT INFORMATION
  Report Type: Spontaneous
  Country: FR (occurrence: FR)
  Receive Date: 20130218
  Receipt Date: 20130322
  Transmission Date: 20140127
  Serious: Yes (Hospitalization, Other)
  Sender: FDA-Public Use
  Company Number: PHHY2013FR015462

PATIENT
  Age: 56 Year
  Sex: Male

DRUGS (1)
  1. TASIGNA [Suspect]
     Indication: CHRONIC MYELOID LEUKAEMIA
     Dosage: 800 MG, QD
     Route: 048
     Dates: start: 20120111

REACTIONS (6)
  - Acute coronary syndrome [Unknown]
  - Myocardial infarction [Unknown]
  - Angina pectoris [Unknown]
  - Pain [Unknown]
  - Coronary artery occlusion [Unknown]
  - Atrial fibrillation [Unknown]
